FAERS Safety Report 6051030-8 (Version None)
Quarter: 2009Q1

REPORT INFORMATION
  Report Type: 
  Country: None (occurrence: None)
  Receive Date: 20090121
  Receipt Date: 20090108
  Transmission Date: 20090719
  Serious: Yes (Hospitalization, Other)
  Sender: FDA-Public Use
  Company Number: A-CH2008-21078

PATIENT
  Age: 73 Year
  Sex: Male

DRUGS (2)
  1. TRACLEER [Suspect]
     Indication: PORTOPULMONARY HYPERTENSION
     Dosage: 62.5 MG, BID, ORAL; 125 MG, BID ORAL;
     Dates: start: 20080201, end: 20080501
  2. TRACLEER [Suspect]
     Indication: PORTOPULMONARY HYPERTENSION
     Dosage: 62.5 MG, BID, ORAL; 125 MG, BID ORAL;
     Dates: start: 20080501, end: 20080626

REACTIONS (4)
  - BONE MARROW FAILURE [None]
  - BONE MARROW TOXICITY [None]
  - RENAL FAILURE [None]
  - RIGHT VENTRICULAR FAILURE [None]
